FAERS Safety Report 5673710-6 (Version None)
Quarter: 2008Q1

REPORT INFORMATION
  Report Type: 
  Country: None (occurrence: None)
  Receive Date: 20080319
  Receipt Date: 20080307
  Transmission Date: 20080703
  Serious: Yes (Other)
  Sender: FDA-Public Use
  Company Number: DE-PFIZER INC-2008006542

PATIENT
  Sex: Male

DRUGS (2)
  1. ZELDOX (CAPSULES) [Suspect]
     Indication: SCHIZOPHRENIA
     Dosage: DAILY DOSE:40MG
     Route: 048
  2. ZYPREXA [Interacting]
     Indication: SCHIZOPHRENIA
     Route: 048
     Dates: start: 20070101, end: 20080125

REACTIONS (3)
  - BLOOD PRESSURE INCREASED [None]
  - DRUG INTERACTION [None]
  - HEART RATE INCREASED [None]
